FAERS Safety Report 16329627 (Version 1)
Quarter: 2019Q2

REPORT INFORMATION
  Report Type: Spontaneous
  Country: DE (occurrence: DE)
  Receive Date: 20190520
  Receipt Date: 20190520
  Transmission Date: 20190711
  Serious: Yes (Hospitalization, Other)
  Sender: FDA-Public Use
  Company Number: DE-ACCORD-128125

PATIENT
  Age: 62 Year
  Sex: Female

DRUGS (2)
  1. RAMIPRIL. [Suspect]
     Active Substance: RAMIPRIL
     Indication: HYPERTENSION
     Dosage: ALSO RECEIVED 10 MG FROM 2006 TO 2008
     Dates: start: 2008
  2. QUILONUM [Suspect]
     Active Substance: LITHIUM
     Indication: SCHIZOAFFECTIVE DISORDER
     Dates: start: 1992

REACTIONS (6)
  - Aphasia [Unknown]
  - Dysmetria [Unknown]
  - Toxicity to various agents [Unknown]
  - Psychomotor retardation [Recovered/Resolved]
  - Somnolence [Unknown]
  - Hyperreflexia [Unknown]
